FAERS Safety Report 11072933 (Version 2)
Quarter: 2015Q2

REPORT INFORMATION
  Report Type: Spontaneous
  Country: NL (occurrence: NL)
  Receive Date: 20150428
  Receipt Date: 20150428
  Transmission Date: 20150821
  Serious: Yes (Other)
  Sender: FDA-Public Use
  Company Number: NL-TEVA-556034ISR

PATIENT
  Age: 37 Year
  Sex: Female
  Weight: 121 kg

DRUGS (19)
  1. PREDNISOLON 20 PCH, TABLETTEN 20 MG [Suspect]
     Active Substance: PREDNISOLONE
     Dosage: EVERY 10 DAYS THE PATIENT USED 5 MG LESS. THE PATIENT DISCONTINUED AT THE END OF JUL-2014
     Route: 048
     Dates: start: 201406, end: 201407
  2. PREDNISOLON 20 PCH, TABLETTEN 20 MG [Suspect]
     Active Substance: PREDNISOLONE
     Dosage: STRESS-SCHEDULE
     Route: 048
     Dates: start: 201408, end: 201408
  3. PREDNISON 5 PCH, TABLETTEN 5 MG [Suspect]
     Active Substance: PREDNISOLONE
     Indication: PREOPERATIVE CARE
     Dosage: 40 MILLIGRAM DAILY;
     Route: 048
     Dates: start: 20140423
  4. MONTELUKAST [Concomitant]
     Active Substance: MONTELUKAST SODIUM
     Indication: ASTHMA
     Dosage: 10 MILLIGRAM DAILY;
     Route: 048
     Dates: start: 200301
  5. SPIRIVA [Concomitant]
     Active Substance: TIOTROPIUM BROMIDE MONOHYDRATE
     Indication: ASTHMA
     Dosage: 18 MICROGRAM DAILY;
     Route: 055
     Dates: start: 200301
  6. PREDNISOLON 20 PCH, TABLETTEN 20 MG [Suspect]
     Active Substance: PREDNISOLONE
     Indication: PREOPERATIVE CARE
     Dosage: 30 MILLIGRAM DAILY;
     Route: 048
     Dates: end: 201406
  7. PREDNISOLON 20 PCH, TABLETTEN 20 MG [Suspect]
     Active Substance: PREDNISOLONE
     Route: 048
     Dates: start: 201503, end: 201503
  8. PREDNISON 5 PCH, TABLETTEN 5 MG [Suspect]
     Active Substance: PREDNISOLONE
     Dosage: 7 DAYS SHOCK TREATMENT
     Route: 048
     Dates: start: 201411, end: 201411
  9. SERETIDE [Concomitant]
     Active Substance: FLUTICASONE FUROATE\SALMETEROL XINAFOATE
     Indication: ASTHMA
     Dosage: 4 DOSAGE FORMS DAILY; 1 DOSAGFE FORM IS: SALMETEROL 25 MCG + FLUTICASONE 250 MCG
     Route: 055
     Dates: start: 199101
  10. BRICANYL [Concomitant]
     Active Substance: TERBUTALINE SULFATE
     Indication: ASTHMA
     Dosage: 3000 MICROGRAM DAILY;
     Route: 055
     Dates: start: 199101
  11. AERIUS [Concomitant]
     Active Substance: DESLORATADINE
     Indication: ASTHMA
     Dosage: 5 MILLIGRAM DAILY;
     Route: 048
  12. PREDNISOLON 20 PCH, TABLETTEN 20 MG [Suspect]
     Active Substance: PREDNISOLONE
     Indication: LUNG DISORDER
     Dosage: 40 MILLIGRAM DAILY;
     Route: 048
     Dates: start: 20140423
  13. PREDNISOLON 20 PCH, TABLETTEN 20 MG [Suspect]
     Active Substance: PREDNISOLONE
     Dosage: 7 DAYS SHOCK TREATMENT
     Route: 048
     Dates: start: 201411, end: 201411
  14. PREDNISON 5 PCH, TABLETTEN 5 MG [Suspect]
     Active Substance: PREDNISOLONE
     Dosage: EVERY 10 DAYS THE PATIENT USED 5 MG LESS. THE PATIENT DISCONTINUED AT THE END OF JUL-2014
     Route: 048
     Dates: start: 201406, end: 201407
  15. PREDNISON 5 PCH, TABLETTEN 5 MG [Suspect]
     Active Substance: PREDNISOLONE
     Dosage: STRESS-SCHEDULE
     Route: 048
     Dates: start: 201408, end: 201408
  16. PAROXETINE [Concomitant]
     Active Substance: PAROXETINE\PAROXETINE HYDROCHLORIDE
     Indication: POST-TRAUMATIC STRESS DISORDER
     Dosage: 20 MILLIGRAM DAILY;
     Route: 048
  17. PREDNISON 5 PCH, TABLETTEN 5 MG [Suspect]
     Active Substance: PREDNISOLONE
     Route: 048
     Dates: start: 201503, end: 201503
  18. AERIUS [Concomitant]
     Active Substance: DESLORATADINE
     Indication: HYPERSENSITIVITY
  19. PREDNISON 5 PCH, TABLETTEN 5 MG [Suspect]
     Active Substance: PREDNISOLONE
     Indication: LUNG DISORDER
     Dosage: 30 MILLIGRAM DAILY;
     Route: 048
     Dates: end: 201406

REACTIONS (6)
  - Choking [Recovered/Resolved]
  - Laryngeal disorder [Recovered/Resolved]
  - Swollen tongue [Recovered/Resolved]
  - Drug hypersensitivity [Recovered/Resolved]
  - Malaise [None]
  - Dyspnoea [Recovered/Resolved]

NARRATIVE: CASE EVENT DATE: 201404
